FAERS Safety Report 7563130-1 (Version None)
Quarter: 2011Q2

REPORT INFORMATION
  Report Type: 
  Country: None (occurrence: None)
  Receive Date: 20110622
  Receipt Date: 20110616
  Transmission Date: 20111010
  Serious: Yes (Hospitalization)
  Sender: FDA-Public Use
  Company Number: US-JNJFOC-20110512550

PATIENT
  Age: 31 Year
  Sex: Male

DRUGS (1)
  1. NUCYNTA [Suspect]
     Indication: ILL-DEFINED DISORDER
     Route: 048
     Dates: start: 20110101, end: 20110101

REACTIONS (2)
  - CONVULSION [None]
  - AMNESIA [None]
